FAERS Safety Report 8715356 (Version 2)
Quarter: 2019Q3

REPORT INFORMATION
  Report Type: Spontaneous
  Country: FR (occurrence: FR)
  Receive Date: 20120809
  Receipt Date: 20190822
  Transmission Date: 20191005
  Serious: Yes (Hospitalization)
  Sender: FDA-Public Use
  Company Number: FR-GLAXOSMITHKLINE-B0819911A

PATIENT
  Age: 82 Year
  Sex: Male

DRUGS (13)
  1. SERESTA [Concomitant]
     Active Substance: OXAZEPAM
  2. SINGULAIR [Concomitant]
     Active Substance: MONTELUKAST SODIUM
  3. TRANSIPEG [Concomitant]
  4. AVODART [Suspect]
     Active Substance: DUTASTERIDE
     Indication: PROSTATIC ADENOMA
     Route: 048
     Dates: end: 20120609
  5. RAMIPRIL. [Concomitant]
     Active Substance: RAMIPRIL
  6. ZOPICLONE [Concomitant]
     Active Substance: ZOPICLONE
  7. ALFUZOSINE [Suspect]
     Active Substance: ALFUZOSIN HYDROCHLORIDE
     Indication: PRODUCT USED FOR UNKNOWN INDICATION
     Route: 048
     Dates: end: 20120609
  8. MOLSIDOMINE [Concomitant]
     Active Substance: MOLSIDOMINE
  9. KARDEGIC [Concomitant]
     Active Substance: ASPIRIN DL-LYSINE
  10. HEMIGOXINE [Concomitant]
     Active Substance: DIGOXIN
  11. MEMANTINE. [Concomitant]
     Active Substance: MEMANTINE
  12. FUROSEMIDE. [Suspect]
     Active Substance: FUROSEMIDE
     Indication: HYPERTENSION
     Route: 048
     Dates: start: 2011, end: 20120609
  13. LANTUS [Concomitant]
     Active Substance: INSULIN GLARGINE

REACTIONS (4)
  - Malaise [Recovered/Resolved]
  - Orthostatic hypotension [Recovered/Resolved]
  - Head injury [Unknown]
  - Fall [Recovered/Resolved]

NARRATIVE: CASE EVENT DATE: 20120608
